FAERS Safety Report 10908812 (Version 5)
Quarter: 2015Q2

REPORT INFORMATION
  Report Type: Report from Study
  Country: US (occurrence: US)
  Receive Date: 20150312
  Receipt Date: 20150622
  Transmission Date: 20150821
  Serious: Yes (Hospitalization, Other)
  Sender: FDA-Public Use
  Company Number: US-SA-2014SA119738

PATIENT
  Age: 89 Year
  Sex: Female

DRUGS (1)
  1. AUBAGIO [Suspect]
     Active Substance: TERIFLUNOMIDE
     Indication: MULTIPLE SCLEROSIS
     Route: 048
     Dates: start: 20131108

REACTIONS (14)
  - Fall [Unknown]
  - Dizziness [Unknown]
  - Concussion [Unknown]
  - Headache [Unknown]
  - Arthralgia [Unknown]
  - Joint instability [Recovering/Resolving]
  - Sinusitis [Unknown]
  - Multiple sclerosis relapse [Unknown]
  - Joint swelling [Unknown]
  - Pain [Recovering/Resolving]
  - Balance disorder [Unknown]
  - Head injury [Recovering/Resolving]
  - Asthenia [Unknown]
  - Drug ineffective [Unknown]

NARRATIVE: CASE EVENT DATE: 20150327
